FAERS Safety Report 8947577 (Version 1)
Quarter: 2012Q4

REPORT INFORMATION
  Report Type: 
  Country: GB (occurrence: GB)
  Receive Date: 20121205
  Receipt Date: 20121205
  Transmission Date: 20130627
  Serious: Yes (Other)
  Sender: FDA-Public Use
  Company Number: GB-ELI_LILLY_AND_COMPANY-GB201211007418

PATIENT
  Age: 49 Year
  Sex: Female

DRUGS (3)
  1. DULOXETINE HYDROCHLORIDE [Suspect]
     Indication: FIBROMYALGIA
     Dosage: 30 mg, unknown
     Route: 048
     Dates: start: 20121110, end: 20121113
  2. CO-DYDRAMOL [Concomitant]
  3. IBUPROFEN [Concomitant]

REACTIONS (3)
  - Ear discomfort [Not Recovered/Not Resolved]
  - Tinnitus [Not Recovered/Not Resolved]
  - Ear pain [Not Recovered/Not Resolved]
